FAERS Safety Report 7484191-4 (Version None)
Quarter: 2011Q2

REPORT INFORMATION
  Report Type: 
  Country: None (occurrence: None)
  Receive Date: 20110509
  Receipt Date: 20110427
  Transmission Date: 20111010
  Serious: Yes (Hospitalization, Other)
  Sender: FDA-Public Use
  Company Number: GB-ACCORD-008824

PATIENT
  Age: 48 Year
  Sex: Male

DRUGS (6)
  1. RAMIPRIL [Concomitant]
  2. AMLODIPINE [Concomitant]
  3. CYCLOSPORINE [Suspect]
     Indication: IMMUNOSUPPRESSANT DRUG THERAPY
     Dosage: 375.00-MG-1.00 TIMES PER 1.0 DAYS
  4. NEBIVOLOL HCL [Concomitant]
  5. MYCOPHENOLATE MOFETIL [Suspect]
     Indication: IMMUNOSUPPRESSANT DRUG THERAPY
     Dosage: 2.25 G-1.00 TIMES PER 1.0 DAYS
  6. METHYLPREDNISOLONE [Suspect]
     Indication: IMMUNOSUPPRESSANT DRUG THERAPY
     Dosage: 0.10 MG/KG-10.00 TIMES PER 1.0 DAYS

REACTIONS (4)
  - CYTOMEGALOVIRUS INFECTION [None]
  - DRUG RESISTANCE [None]
  - INFECTION IN AN IMMUNOCOMPROMISED HOST [None]
  - AORTIC DISSECTION [None]
